FAERS Safety Report 7946653-2 (Version None)
Quarter: 2011Q4

REPORT INFORMATION
  Report Type: 
  Country: None (occurrence: None)
  Receive Date: 20111129
  Receipt Date: 20111123
  Transmission Date: 20120403
  Serious: Yes (Death, Hospitalization)
  Sender: FDA-Public Use
  Company Number: GB-ELI_LILLY_AND_COMPANY-GB201111007486

PATIENT
  Sex: Male
  Weight: 77 kg

DRUGS (13)
  1. DILTIAZEM HCL [Concomitant]
     Indication: ANGINA PECTORIS
     Dosage: 300 MG, UNK
     Route: 048
     Dates: start: 19880101
  2. SOTALOL HCL [Concomitant]
     Indication: HYPERTENSION
     Dosage: 40 MG, UNK
     Route: 048
     Dates: start: 19880101
  3. SIMVASTATIN [Concomitant]
     Indication: HYPERCHOLESTEROLAEMIA
     Dosage: 40 MG, UNK
     Route: 048
     Dates: start: 19880101
  4. ACETAMINOPHEN [Concomitant]
     Indication: PAIN
     Dosage: 1 G, UNK
     Route: 048
     Dates: start: 20111112, end: 20111114
  5. LOSARTAN POTASSIUM [Concomitant]
     Indication: HYPERTENSION
     Dosage: 100 MG, UNK
     Route: 048
     Dates: start: 19880101
  6. LOVAZA [Concomitant]
     Dosage: UNK, QD
     Route: 048
  7. Q10 [Concomitant]
     Dosage: UNK, QD
     Route: 048
  8. ASPIRIN [Concomitant]
     Indication: ANGINA PECTORIS
     Dosage: 75 MG, QD
     Route: 048
     Dates: start: 19880101
  9. CIPROFLOXACIN [Concomitant]
     Indication: PROPHYLAXIS
     Dosage: 500 MG, PRN
     Route: 048
     Dates: start: 19880101
  10. FOLIC ACID [Concomitant]
     Indication: PROPHYLAXIS
     Dosage: 400 UG, QD
     Route: 048
     Dates: start: 20110916, end: 20111114
  11. LACTOBACILLUS [Concomitant]
     Dosage: UNK, QD
     Route: 048
  12. PEMETREXED [Suspect]
     Indication: NON-SMALL CELL LUNG CANCER
     Dosage: 500 MG/M2, UNK
     Route: 042
     Dates: start: 20110930, end: 20111109
  13. TAXOL [Suspect]
     Indication: NON-SMALL CELL LUNG CANCER
     Dosage: 175 MG/M2, UNK
     Route: 042
     Dates: start: 20110930, end: 20111109

REACTIONS (1)
  - LARGE INTESTINE PERFORATION [None]
